FAERS Safety Report 6629221-4 (Version None)
Quarter: 2010Q1

REPORT INFORMATION
  Report Type: 
  Country: None (occurrence: None)
  Receive Date: 20100311
  Receipt Date: 20090727
  Transmission Date: 20100710
  Serious: No
  Sender: FDA-Public Use
  Company Number: US-BIOGENIDEC-2009BI023567

PATIENT
  Age: 23 Year
  Sex: Female

DRUGS (3)
  1. AVONEX [Suspect]
     Indication: MULTIPLE SCLEROSIS
     Route: 030
     Dates: start: 20010925
  2. AVONEX [Suspect]
     Route: 030
     Dates: start: 20060706
  3. AVONEX [Suspect]
     Route: 030
     Dates: start: 20090625

REACTIONS (1)
  - BALANCE DISORDER [None]
